FAERS Safety Report 8596010 (Version 3)
Quarter: 2014Q1

REPORT INFORMATION
  Report Type: Spontaneous
  Country: US (occurrence: US)
  Receive Date: 20120605
  Receipt Date: 20140131
  Transmission Date: 20141002
  Serious: Yes (Hospitalization)
  Sender: FDA-Public Use
  Company Number: US-ASTRAZENECA-2012SE35010

PATIENT
  Age: 18247 Day
  Sex: Female

DRUGS (18)
  1. NEXIUM [Suspect]
     Indication: GASTROOESOPHAGEAL REFLUX DISEASE
     Dosage: TWICE A DAY
     Route: 048
  2. NEXIUM [Suspect]
     Indication: GASTROOESOPHAGEAL REFLUX DISEASE
     Route: 048
     Dates: start: 20080501
  3. NEXIUM [Suspect]
     Indication: GASTROOESOPHAGEAL REFLUX DISEASE
     Route: 048
     Dates: start: 20130207
  4. LEVOTHYROXINE [Concomitant]
     Route: 048
     Dates: start: 20080501
  5. TIZANIDINE [Concomitant]
     Route: 048
     Dates: start: 20130103
  6. CALCIUM + D [Concomitant]
     Dosage: 600-200 MG UNIT
     Route: 048
     Dates: start: 20111107
  7. ASA [Concomitant]
     Route: 048
  8. PREDNISONE [Concomitant]
     Route: 048
     Dates: start: 20130115
  9. HYDROCODONE/ ACETAMINOPHEN [Concomitant]
     Dates: start: 20120906
  10. CARBAMAZEPINE [Concomitant]
     Route: 048
     Dates: start: 20120929
  11. IBUPROFEN [Concomitant]
     Route: 048
     Dates: start: 20120612
  12. BACLOFEN [Concomitant]
     Route: 048
     Dates: start: 20080507
  13. REQUIP [Concomitant]
     Route: 048
     Dates: start: 20080304
  14. PAROXETINE [Concomitant]
  15. FUROSEMIDE [Concomitant]
  16. SYMBICORT [Concomitant]
  17. GABAPENTIN [Concomitant]
  18. ALPRAZOLAM [Concomitant]
     Indication: ANXIETY
     Dosage: THREE TIMES DAILY
     Route: 048

REACTIONS (7)
  - Hysterectomy [Unknown]
  - Knee arthroplasty [Unknown]
  - Osteoporosis [Unknown]
  - Carpal tunnel syndrome [Unknown]
  - Multiple fractures [Unknown]
  - Osteoarthritis [Unknown]
  - Osteopenia [Unknown]
